FAERS Safety Report 10305692 (Version 2)
Quarter: 2014Q3

REPORT INFORMATION
  Report Type: Spontaneous
  Country: US (occurrence: US)
  Receive Date: 20140715
  Receipt Date: 20140905
  Transmission Date: 20150326
  Serious: Yes (Other)
  Sender: FDA-Public Use
  Company Number: US-FRI-1000069005

PATIENT
  Age: 89 Year
  Sex: Female

DRUGS (8)
  1. LINZESS [Suspect]
     Active Substance: LINACLOTIDE
     Indication: BOWEL MOVEMENT IRREGULARITY
     Dosage: 145 MCG
     Route: 048
     Dates: start: 20140711, end: 201407
  2. DEXILANT [Concomitant]
     Active Substance: DEXLANSOPRAZOLE
  3. COZAAR [Concomitant]
     Active Substance: LOSARTAN POTASSIUM
  4. VITAMINS NOS [Concomitant]
     Active Substance: VITAMINS
  5. AMARYL [Concomitant]
     Active Substance: GLIMEPIRIDE
     Indication: DIABETES MELLITUS
  6. ASPIRIN. [Concomitant]
     Active Substance: ASPIRIN
     Dosage: 81 MG
  7. EYE DROPS NOS [Concomitant]
     Active Substance: UNSPECIFIED INGREDIENT
  8. CRESTOR [Concomitant]
     Active Substance: ROSUVASTATIN CALCIUM

REACTIONS (2)
  - Blood glucose increased [Recovered/Resolved]
  - Off label use [Recovered/Resolved]

NARRATIVE: CASE EVENT DATE: 20140711
